FAERS Safety Report 14849673 (Version 1)
Quarter: 2018Q2

REPORT INFORMATION
  Report Type: Spontaneous
  Country: CN (occurrence: CN)
  Receive Date: 20180504
  Receipt Date: 20180504
  Transmission Date: 20180711
  Serious: Yes (Hospitalization)
  Sender: FDA-Public Use
  Company Number: CN-ROCHE-2117841

PATIENT
  Age: 44 Year
  Sex: Female
  Weight: 57.5 kg

DRUGS (1)
  1. PEGASYS [Suspect]
     Active Substance: PEGINTERFERON ALFA-2A
     Indication: CHRONIC HEPATITIS C
     Route: 058
     Dates: start: 20180206, end: 20180206

REACTIONS (5)
  - Rhinorrhoea [Recovering/Resolving]
  - Pharyngeal oedema [Recovering/Resolving]
  - Hypoaesthesia [Recovering/Resolving]
  - Swelling [Recovering/Resolving]
  - Rash [Recovering/Resolving]

NARRATIVE: CASE EVENT DATE: 20180206
